FAERS Safety Report 20802976 (Version 12)
Quarter: 2022Q3

REPORT INFORMATION
  Report Type: Report from Study
  Country: CA (occurrence: None)
  Receive Date: 20220509
  Receipt Date: 20220913
  Transmission Date: 20221026
  Serious: Yes (Death, Hospitalization)
  Sender: FDA-Public Use
  Company Number: CA-ROCHE-3086541

PATIENT
  Age: 53 Year
  Sex: Female
  Weight: 93 kg

DRUGS (56)
  1. OCRELIZUMAB [Suspect]
     Active Substance: OCRELIZUMAB
     Indication: Relapsing-remitting multiple sclerosis
     Dosage: BASELINE (WEEK 1)?INFUSION RELATED REACTION SLOWED DOWN
     Route: 042
     Dates: start: 20121120, end: 20121120
  2. OCRELIZUMAB [Suspect]
     Active Substance: OCRELIZUMAB
     Dosage: WEEK 2
     Route: 042
     Dates: start: 20121204, end: 20121204
  3. OCRELIZUMAB [Suspect]
     Active Substance: OCRELIZUMAB
     Dosage: WEEK 24
     Route: 042
     Dates: start: 20130506, end: 20130506
  4. OCRELIZUMAB [Suspect]
     Active Substance: OCRELIZUMAB
     Dosage: WEEK 48
     Route: 042
     Dates: start: 20131021, end: 20131021
  5. OCRELIZUMAB [Suspect]
     Active Substance: OCRELIZUMAB
     Dosage: WEEK 72
     Route: 042
     Dates: start: 20140408, end: 20140408
  6. PLACEBO [Suspect]
     Active Substance: UNSPECIFIED INGREDIENT
     Indication: Relapsing-remitting multiple sclerosis
     Route: 058
     Dates: start: 20121120, end: 20121214
  7. OCRELIZUMAB [Suspect]
     Active Substance: OCRELIZUMAB
     Indication: Relapsing-remitting multiple sclerosis
     Dosage: OLE-WEEK 0
     Route: 042
     Dates: start: 20141020, end: 20141020
  8. OCRELIZUMAB [Suspect]
     Active Substance: OCRELIZUMAB
     Dosage: OLE-WEEK 2
     Route: 042
     Dates: start: 20141104, end: 20141104
  9. OCRELIZUMAB [Suspect]
     Active Substance: OCRELIZUMAB
     Dosage: OLE-WEEK 24
     Route: 042
     Dates: start: 20150407, end: 20150407
  10. OCRELIZUMAB [Suspect]
     Active Substance: OCRELIZUMAB
     Dosage: OLE-WEEK 48
     Route: 042
     Dates: start: 20150921, end: 20150921
  11. OCRELIZUMAB [Suspect]
     Active Substance: OCRELIZUMAB
     Dosage: OLE-WEEK 72
     Route: 042
     Dates: start: 20160307, end: 20160307
  12. OCRELIZUMAB [Suspect]
     Active Substance: OCRELIZUMAB
     Dosage: OLE-WEEK 96
     Route: 042
     Dates: start: 20160823, end: 20160823
  13. OCRELIZUMAB [Suspect]
     Active Substance: OCRELIZUMAB
     Dosage: OLE-WEEK 120
     Route: 042
     Dates: start: 20170206, end: 20170206
  14. OCRELIZUMAB [Suspect]
     Active Substance: OCRELIZUMAB
     Dosage: OLE-WEEK 144
     Route: 042
     Dates: start: 20170724, end: 20170724
  15. OCRELIZUMAB [Suspect]
     Active Substance: OCRELIZUMAB
     Dosage: OLE-WEEK 168
     Route: 042
     Dates: start: 20180108, end: 20180108
  16. OCRELIZUMAB [Suspect]
     Active Substance: OCRELIZUMAB
     Dosage: OLE-WEEK 192
     Route: 042
     Dates: start: 20180627, end: 20180627
  17. OCRELIZUMAB [Suspect]
     Active Substance: OCRELIZUMAB
     Dosage: OLE-WEEK 216
     Route: 042
     Dates: start: 20181210, end: 20181210
  18. OCRELIZUMAB [Suspect]
     Active Substance: OCRELIZUMAB
     Dosage: OLE-WEEK 240
     Route: 042
     Dates: start: 20190527, end: 20190527
  19. OCRELIZUMAB [Suspect]
     Active Substance: OCRELIZUMAB
     Dosage: OLE-WEEK 264
     Route: 042
     Dates: start: 20191112, end: 20191112
  20. OCRELIZUMAB [Suspect]
     Active Substance: OCRELIZUMAB
     Dosage: OLE-WEEK 288
     Route: 042
     Dates: start: 20200429, end: 20200429
  21. OCRELIZUMAB [Suspect]
     Active Substance: OCRELIZUMAB
     Dosage: OLE-WEEK 312
     Route: 042
     Dates: start: 20201007, end: 20201007
  22. OCRELIZUMAB [Suspect]
     Active Substance: OCRELIZUMAB
     Dosage: OLE-WEEK 336
     Route: 042
     Dates: start: 20210329, end: 20210329
  23. OCRELIZUMAB [Suspect]
     Active Substance: OCRELIZUMAB
     Dosage: OLE-WEEK 360
     Route: 042
     Dates: start: 20210914, end: 20210914
  24. OCRELIZUMAB [Suspect]
     Active Substance: OCRELIZUMAB
     Dosage: OLE-WEEK 384
     Route: 042
     Dates: start: 20220223, end: 20220223
  25. BENADRYL [Concomitant]
     Active Substance: DIPHENHYDRAMINE HYDROCHLORIDE
     Indication: Relapsing multiple sclerosis
     Dosage: BASELINE (WEEK 1)?RECEIVED AS PRE-MEDICATION DURING EACH CYCLE
     Dates: start: 20121120
  26. TYLENOL [Concomitant]
     Active Substance: ACETAMINOPHEN
     Indication: Nasopharyngitis
     Dosage: BASELINE (WEEK 1)?RECEIVED AS PRE-MEDICATION DURING EACH CYCLE
     Dates: start: 20121120
  27. TYLENOL [Concomitant]
     Active Substance: ACETAMINOPHEN
     Indication: Nasopharyngitis
     Dates: start: 20170117, end: 20170210
  28. TYLENOL [Concomitant]
     Active Substance: ACETAMINOPHEN
     Indication: COVID-19
     Dates: start: 20200309, end: 20200312
  29. TYLENOL [Concomitant]
     Active Substance: ACETAMINOPHEN
     Indication: Headache
     Dates: start: 20220323, end: 20220325
  30. TYLENOL [Concomitant]
     Active Substance: ACETAMINOPHEN
     Indication: Oropharyngeal pain
     Dates: start: 1990
  31. TYLENOL [Concomitant]
     Active Substance: ACETAMINOPHEN
     Dates: start: 20140816, end: 20140820
  32. TYLENOL [Concomitant]
     Active Substance: ACETAMINOPHEN
     Dates: start: 20200309, end: 20200312
  33. TYLENOL [Concomitant]
     Active Substance: ACETAMINOPHEN
     Dates: start: 20220323, end: 20220325
  34. ZANTAC [Concomitant]
     Active Substance: RANITIDINE HYDROCHLORIDE
     Dosage: BASELINE (WEEK 1)?RECEIVED AS PRE-MEDICATION DURING EACH CYCLE
     Dates: start: 20121120
  35. METHYLPREDNISOLONE [Concomitant]
     Active Substance: METHYLPREDNISOLONE
     Dosage: BASELINE (WEEK 1)?RECEIVED AS PRE-MEDICATION DURING EACH CYCLE
     Dates: start: 20121120, end: 20121120
  36. PANTOPRAZOLE SODIUM [Concomitant]
     Active Substance: PANTOPRAZOLE SODIUM
     Dates: start: 20160524
  37. CIPRALEX [Concomitant]
     Active Substance: ESCITALOPRAM OXALATE
     Indication: Depression
     Dates: start: 20190929, end: 20191005
  38. CIPRALEX [Concomitant]
     Active Substance: ESCITALOPRAM OXALATE
     Dates: start: 20191006, end: 20201116
  39. CIPRALEX [Concomitant]
     Active Substance: ESCITALOPRAM OXALATE
     Dates: start: 20201117, end: 20210925
  40. CIPRALEX [Concomitant]
     Active Substance: ESCITALOPRAM OXALATE
     Dates: start: 20210926, end: 20211002
  41. CIPRALEX [Concomitant]
     Active Substance: ESCITALOPRAM OXALATE
     Dates: start: 20211003, end: 20211009
  42. CIPRALEX [Concomitant]
     Active Substance: ESCITALOPRAM OXALATE
     Dates: start: 20211010
  43. PRISTIQ EXTENDED-RELEASE [Concomitant]
     Active Substance: DESVENLAFAXINE SUCCINATE
     Indication: Depression
     Dates: start: 20210919, end: 20211002
  44. PRISTIQ EXTENDED-RELEASE [Concomitant]
     Active Substance: DESVENLAFAXINE SUCCINATE
     Dates: start: 20211003
  45. BETAMETHASONE VALERATE [Concomitant]
     Active Substance: BETAMETHASONE VALERATE
     Indication: Eczema
     Dosage: 1 APPLICATION
     Dates: start: 20140601
  46. BETADERM [Concomitant]
     Active Substance: BETAMETHASONE VALERATE
     Indication: Eczema
     Dates: start: 20170906
  47. VITAMIN C [Concomitant]
     Active Substance: ASCORBIC ACID
     Dates: start: 2009
  48. HYDRODIURIL [Concomitant]
     Active Substance: HYDROCHLOROTHIAZIDE
     Indication: Hypertension
     Dates: start: 2003, end: 20121215
  49. HYDRODIURIL [Concomitant]
     Active Substance: HYDROCHLOROTHIAZIDE
     Dates: start: 20121216
  50. DILTIAZEM HYDROCHLORIDE [Concomitant]
     Active Substance: DILTIAZEM HYDROCHLORIDE
     Indication: Hypertension
     Dates: start: 2004, end: 20121122
  51. DILTIAZEM HYDROCHLORIDE [Concomitant]
     Active Substance: DILTIAZEM HYDROCHLORIDE
     Dates: start: 20121123
  52. ATACAND [Concomitant]
     Active Substance: CANDESARTAN CILEXETIL
     Indication: Hypertension
     Dates: start: 20180711
  53. FLONASE [Concomitant]
     Active Substance: FLUTICASONE PROPIONATE
     Indication: Nasal congestion
     Dosage: 1 PUFF
     Dates: start: 2003
  54. METFORMIN [Concomitant]
     Active Substance: METFORMIN HYDROCHLORIDE
     Indication: Type 2 diabetes mellitus
     Dates: start: 20211104
  55. FAMOTIDINE [Concomitant]
     Active Substance: FAMOTIDINE
     Dosage: 29/APR/2020, 07/OCT/2020, 29/MAR/2021, 14/SEP/2021, 23/FEB/2022
     Dates: start: 20191112
  56. KCL [Concomitant]
     Active Substance: POTASSIUM CHLORIDE
     Indication: Acute kidney injury
     Dates: start: 20220415, end: 20220415

REACTIONS (1)
  - COVID-19 pneumonia [Fatal]

NARRATIVE: CASE EVENT DATE: 20220323
